FAERS Safety Report 24207337 (Version 1)
Quarter: 2024Q3

REPORT INFORMATION
  Report Type: Spontaneous
  Country: US (occurrence: US)
  Receive Date: 20240813
  Receipt Date: 20240813
  Transmission Date: 20241016
  Serious: No
  Sender: ABBVIE
  Company Number: US-ABBVIE-5869791

PATIENT

DRUGS (1)
  1. HUMIRA [Suspect]
     Active Substance: ADALIMUMAB
     Indication: Crohn^s disease
     Route: 058

REACTIONS (5)
  - Hepatic steatosis [Unknown]
  - Alanine aminotransferase increased [Unknown]
  - Alanine aminotransferase abnormal [Unknown]
  - Blood albumin abnormal [Unknown]
  - Glucose tolerance impaired [Unknown]
